FAERS Safety Report 6770565-3 (Version None)
Quarter: 2010Q2

REPORT INFORMATION
  Report Type: 
  Country: None (occurrence: None)
  Receive Date: 20100615
  Receipt Date: 20100606
  Transmission Date: 20101027
  Serious: Yes (Other)
  Sender: FDA-Public Use
  Company Number: PHHY2010US37680

PATIENT
  Sex: Female

DRUGS (1)
  1. RECLAST [Suspect]
     Indication: OSTEOPOROSIS
     Dosage: 5 MG
     Route: 042
     Dates: start: 20100602

REACTIONS (9)
  - ABASIA [None]
  - ARTHRALGIA [None]
  - ASTHENIA [None]
  - BONE PAIN [None]
  - CHEST PAIN [None]
  - FATIGUE [None]
  - IMPAIRED WORK ABILITY [None]
  - MUSCLE SPASMS [None]
  - PAIN [None]
